FAERS Safety Report 14292607 (Version 4)
Quarter: 2018Q4

REPORT INFORMATION
  Report Type: Spontaneous
  Country: FR (occurrence: FR)
  Receive Date: 20171215
  Receipt Date: 20181030
  Transmission Date: 20190204
  Serious: Yes (Hospitalization)
  Sender: FDA-Public Use
  Company Number: FR-PURDUE-GBR-2017-0051671

PATIENT
  Age: 46 Year
  Sex: Female

DRUGS (2)
  1. NON-PMN BUPRENORPHINE [Suspect]
     Active Substance: BUPRENORPHINE
     Indication: DRUG WITHDRAWAL MAINTENANCE THERAPY
     Dosage: 1 DF, UNK
     Route: 065
  2. NALMEFENE HYDROCHLORIDE [Interacting]
     Active Substance: NALMEFENE HYDROCHLORIDE
     Indication: ALCOHOL WITHDRAWAL SYNDROME
     Dosage: 1 DF, UNK
     Route: 065

REACTIONS (8)
  - Hyperhidrosis [Recovered/Resolved]
  - Drug interaction [Recovered/Resolved]
  - Psychomotor hyperactivity [Recovered/Resolved]
  - Nausea [Recovered/Resolved]
  - Drug withdrawal syndrome [Recovered/Resolved]
  - Muscle spasms [Unknown]
  - Flushing [Recovered/Resolved]
  - Myalgia [Recovered/Resolved]
